FAERS Safety Report 5445784-9 (Version None)
Quarter: 2007Q3

REPORT INFORMATION
  Report Type: 
  Country: None (occurrence: None)
  Receive Date: 20070904
  Receipt Date: 20070820
  Transmission Date: 20080115
  Serious: Yes (Death)
  Sender: FDA-Public Use
  Company Number: 2007RR-09514

PATIENT
  Age: 19 Year
  Sex: Male

DRUGS (6)
  1. IBUPROFEN [Suspect]
  2. CHLORPHENIRAMINE MALEATE [Suspect]
  3. CYCLOBENZAPRINE [Suspect]
  4. LIGNOCAINE (LIGNOCAINE) [Suspect]
  5. PHENYLPROPANOLAMINE [Suspect]
  6. PHENYTOIN [Suspect]

REACTIONS (3)
  - METABOLIC ACIDOSIS [None]
  - MULTIPLE DRUG OVERDOSE [None]
  - TACHYCARDIA [None]
